FAERS Safety Report 13613440 (Version 6)
Quarter: 2018Q4

REPORT INFORMATION
  Report Type: Report from Study
  Country: AR (occurrence: AR)
  Receive Date: 20170605
  Receipt Date: 20181009
  Transmission Date: 20190204
  Serious: Yes (Hospitalization, Other)
  Sender: FDA-Public Use
  Company Number: PHHY2017AR081818

PATIENT
  Age: 13 Year
  Sex: Male
  Weight: 61.5 kg

DRUGS (16)
  1. EVEROLIMUS. [Suspect]
     Active Substance: EVEROLIMUS
     Dosage: UNK, QD
     Route: 048
     Dates: start: 20161025
  2. EVEROLIMUS. [Suspect]
     Active Substance: EVEROLIMUS
     Dosage: 15 MG, QD
     Route: 048
     Dates: start: 20161201, end: 201710
  3. METHYLPHENIDATE HYDROCHLORIDE. [Suspect]
     Active Substance: METHYLPHENIDATE HYDROCHLORIDE
     Dosage: 34 MG, UNK
     Route: 065
     Dates: start: 20151105
  4. LACOSAMIDE. [Concomitant]
     Active Substance: LACOSAMIDE
     Dosage: 200 MG, BID
     Route: 065
  5. SAIKEL [Concomitant]
     Indication: PRODUCT USED FOR UNKNOWN INDICATION
     Dosage: 800 MG, QD
     Route: 065
     Dates: start: 201704
  6. LACOSAMIDE. [Concomitant]
     Active Substance: LACOSAMIDE
     Indication: SEIZURE
     Dosage: 6.5 MG/KG (200 MG), QD (EVERY 12 HOURS)
     Route: 048
  7. LACOTEM [Concomitant]
     Active Substance: LACOSAMIDE
     Indication: PRODUCT USED FOR UNKNOWN INDICATION
     Dosage: 400 MG, QD
     Route: 065
     Dates: start: 201704
  8. CLOBAZAM. [Concomitant]
     Active Substance: CLOBAZAM
     Indication: SEIZURE
     Dosage: 0.32 MG/KG, QD (EVERY 12 HOURS (10 MG- 10 MG))
     Route: 065
  9. IRAZEM [Concomitant]
     Active Substance: ARIPIPRAZOLE
     Indication: PRODUCT USED FOR UNKNOWN INDICATION
     Dosage: 15 MG, UNK
     Route: 065
     Dates: start: 201704
  10. ARIPIPRAZOLE. [Concomitant]
     Active Substance: ARIPIPRAZOLE
     Indication: PRODUCT USED FOR UNKNOWN INDICATION
     Dosage: 10 MG, UNK
     Route: 065
  11. KARIDIUM [Concomitant]
     Indication: PRODUCT USED FOR UNKNOWN INDICATION
     Dosage: 15 MG, QD
     Route: 065
     Dates: start: 201704
  12. CONCERTA [Concomitant]
     Active Substance: METHYLPHENIDATE HYDROCHLORIDE
     Indication: PRODUCT USED FOR UNKNOWN INDICATION
     Dosage: 54 MG, UNK
     Route: 065
     Dates: start: 201704
  13. CLOBAZAM. [Concomitant]
     Active Substance: CLOBAZAM
     Dosage: 10 MG, BID
     Route: 065
  14. LACOSAMIDE. [Concomitant]
     Active Substance: LACOSAMIDE
     Dosage: 400 MG, QD
     Route: 065
     Dates: start: 20151105
  15. METHYLPHENIDATE HYDROCHLORIDE. [Suspect]
     Active Substance: METHYLPHENIDATE HYDROCHLORIDE
     Indication: ABNORMAL BEHAVIOUR
     Dosage: 54 MG, QD
     Route: 048
  16. EVEROLIMUS. [Suspect]
     Active Substance: EVEROLIMUS
     Indication: EPILEPSY
     Dosage: 15 NG/ML, (9-15 NG/ML)
     Route: 048
     Dates: start: 20150527, end: 20160604

REACTIONS (21)
  - Skin laceration [Recovered/Resolved]
  - Hypertonia [Unknown]
  - Gaze palsy [Unknown]
  - Sleep disorder [Unknown]
  - Transaminases increased [Recovered/Resolved]
  - Weight increased [Unknown]
  - Skin infection [Unknown]
  - Diarrhoea [Unknown]
  - Skin abrasion [Recovered/Resolved]
  - Angiofibroma [Unknown]
  - Epilepsy [Recovering/Resolving]
  - Seizure [Not Recovered/Not Resolved]
  - Metabolic acidosis [Unknown]
  - Cognitive disorder [Unknown]
  - Aggression [Unknown]
  - Automatism [Unknown]
  - Abnormal behaviour [Unknown]
  - Stomatitis [Unknown]
  - Leukocytosis [Recovered/Resolved]
  - Disturbance in social behaviour [Unknown]
  - Skin abrasion [Unknown]

NARRATIVE: CASE EVENT DATE: 20160603
